FAERS Safety Report 7737019-9 (Version None)
Quarter: 2011Q3

REPORT INFORMATION
  Report Type: 
  Country: None (occurrence: None)
  Receive Date: 20110908
  Receipt Date: 20110826
  Transmission Date: 20111222
  Serious: Yes (Hospitalization, Other)
  Sender: FDA-Public Use
  Company Number: US-ELI_LILLY_AND_COMPANY-US201002002446

PATIENT
  Sex: Female
  Weight: 60.317 kg

DRUGS (26)
  1. CALCIUM CARBONATE [Concomitant]
     Dosage: 2000 MG, QD
  2. SYNTHROID [Concomitant]
  3. CALCIUM D-500 [Concomitant]
     Dosage: UNK
  4. CALCIUM W/VITAMIN D NOS [Concomitant]
  5. FORTEO [Suspect]
     Dosage: 20 UG, DAILY (1/D)
  6. FORTEO [Suspect]
     Dosage: 20 UG, QD
  7. ATENOLOL [Concomitant]
     Indication: HYPERTENSION
     Dosage: UNK, DAILY (1/D)
  8. FORTEO [Suspect]
     Dosage: 20 UG, DAILY (1/D)
     Route: 065
     Dates: start: 20100205
  9. FOLIC ACID [Concomitant]
     Indication: ANAEMIA
     Dosage: UNK, DAILY (1/D)
  10. ARAVA [Concomitant]
     Indication: RHEUMATOID ARTHRITIS
     Dosage: 10 MG, UNK
  11. CALCIUM CARBONATE [Concomitant]
     Indication: OSTEOPOROSIS
     Dosage: 1500 U, DAILY (1/D)
  12. FORTEO [Suspect]
     Dosage: 20 UG, QD
  13. ATENOLOL [Concomitant]
     Dosage: UNK, BID
  14. VITAMIN D [Concomitant]
     Dosage: 4000 U, QD
  15. ASPIRIN [Concomitant]
     Indication: CARDIAC DISORDER
     Dosage: 81 MG, BID
  16. LEFLUNOMIDE [Concomitant]
  17. PLAVIX [Concomitant]
  18. CRESTOR [Concomitant]
     Dosage: UNK, DAILY (1/D)
     Route: 065
  19. ACETAMINOPHEN [Concomitant]
     Indication: MUSCULOSKELETAL STIFFNESS
     Dosage: UNK, EACH MORNING
  20. METHOTREXATE [Concomitant]
     Indication: RHEUMATOID ARTHRITIS
     Dosage: 2.5 MG, UNK
  21. ASPIRIN [Concomitant]
     Dosage: UNK
  22. LEVOTHYROXINE SODIUM [Concomitant]
     Dosage: 0.112 MG, QD
  23. VITAMIN D [Concomitant]
  24. FORTEO [Suspect]
     Indication: OSTEOPOROSIS
     Dosage: 20 UG, DAILY (1/D)
     Route: 065
     Dates: start: 20091007, end: 20100203
  25. DIOVAN [Concomitant]
     Indication: HYPERTENSION
     Dosage: UNK, DAILY (1/D)
  26. ASPIRIN [Concomitant]
     Indication: ANTICOAGULANT THERAPY
     Dosage: 325 MG, DAILY (1/D)

REACTIONS (29)
  - DYSPHONIA [None]
  - OEDEMA PERIPHERAL [None]
  - SPEECH DISORDER [None]
  - ASTHENIA [None]
  - GOITRE [None]
  - THROAT CANCER [None]
  - WEIGHT DECREASED [None]
  - PAIN IN EXTREMITY [None]
  - BLOOD CALCIUM DECREASED [None]
  - DRUG DOSE OMISSION [None]
  - CHEST DISCOMFORT [None]
  - THYROID DISORDER [None]
  - PARATHYROID DISORDER [None]
  - BLOOD MAGNESIUM DECREASED [None]
  - THYROID NEOPLASM [None]
  - ABASIA [None]
  - ERYTHEMA [None]
  - INSOMNIA [None]
  - CORONARY ARTERY OCCLUSION [None]
  - RHEUMATOID ARTHRITIS [None]
  - MUSCULOSKELETAL STIFFNESS [None]
  - OROPHARYNGEAL PAIN [None]
  - TREMOR [None]
  - MUSCULOSKELETAL PAIN [None]
  - ADVERSE EVENT [None]
  - ATRIAL FIBRILLATION [None]
  - THYROID CYST [None]
  - FATIGUE [None]
  - MOBILITY DECREASED [None]
